FAERS Safety Report 6231951-3 (Version None)
Quarter: 2009Q2

REPORT INFORMATION
  Report Type: 
  Country: None (occurrence: None)
  Receive Date: 20090616
  Receipt Date: 20090602
  Transmission Date: 20091009
  Serious: Yes (Other)
  Sender: FDA-Public Use
  Company Number: US-ELI_LILLY_AND_COMPANY-US200906000609

PATIENT
  Age: 15 Year
  Sex: Female

DRUGS (2)
  1. CYMBALTA [Suspect]
     Dosage: 1200 MG, UNK
     Route: 048
     Dates: start: 20090219, end: 20090219
  2. PHENERGAN [Concomitant]
     Dosage: 400 MG, UNK
     Dates: start: 20080219, end: 20080219

REACTIONS (3)
  - HOMICIDAL IDEATION [None]
  - INTENTIONAL OVERDOSE [None]
  - SUICIDE ATTEMPT [None]
